FAERS Safety Report 19510783 (Version 3)
Quarter: 2021Q3

REPORT INFORMATION
  Report Type: Spontaneous
  Country: GB (occurrence: GB)
  Receive Date: 20210709
  Receipt Date: 20210827
  Transmission Date: 20211014
  Serious: Yes (Death, Hospitalization, Disabling, Other)
  Sender: FDA-Public Use
  Company Number: GB-ALKEM LABORATORIES LIMITED-GB-ALKEM-2021-04364

PATIENT
  Age: 76 Year
  Sex: Male
  Weight: 69 kg

DRUGS (23)
  1. EPLERENONE. [Concomitant]
     Active Substance: EPLERENONE
     Indication: PRODUCT USED FOR UNKNOWN INDICATION
     Dosage: EPLERENONE 25MG OM PO O/A
     Route: 048
     Dates: end: 20180130
  2. GLICLAZIDE [Concomitant]
     Active Substance: GLICLAZIDE
     Indication: PRODUCT USED FOR UNKNOWN INDICATION
     Dosage: GLICLAZIDE 40MG OM PO O/A
     Route: 048
  3. GLUCAGON. [Concomitant]
     Active Substance: GLUCAGON
     Indication: PRODUCT USED FOR UNKNOWN INDICATION
     Dosage: UNK
     Route: 030
     Dates: start: 20180130
  4. SALBUTAMOL [Concomitant]
     Active Substance: ALBUTEROL
     Indication: PRODUCT USED FOR UNKNOWN INDICATION
     Dosage: UNK
     Route: 065
  5. CEFUROXIME AXETIL. [Suspect]
     Active Substance: CEFUROXIME AXETIL
     Indication: PRODUCT USED FOR UNKNOWN INDICATION
     Dosage: UNK
     Route: 065
     Dates: start: 20180131
  6. ADOPORT [Suspect]
     Active Substance: TACROLIMUS
     Dosage: TACROLIMUS 2 MG TWICE DAILY
     Route: 048
     Dates: end: 20180128
  7. BETAHISTINE [Concomitant]
     Active Substance: BETAHISTINE
     Indication: PRODUCT USED FOR UNKNOWN INDICATION
     Dosage: BETAHISTINE 8MG OM PO
     Route: 048
  8. DEXTROSE. [Concomitant]
     Active Substance: DEXTROSE
     Indication: PRODUCT USED FOR UNKNOWN INDICATION
     Dosage: UNK
     Route: 065
     Dates: start: 20180130
  9. FUROSEMIDE. [Concomitant]
     Active Substance: FUROSEMIDE
     Indication: PRODUCT USED FOR UNKNOWN INDICATION
     Dosage: FUROSEMIDE 80MG OM PO O/A
     Route: 048
     Dates: end: 20180130
  10. HYDROCORTISONE. [Concomitant]
     Active Substance: HYDROCORTISONE
     Indication: PRODUCT USED FOR UNKNOWN INDICATION
     Dosage: HYDRORTISIONE 50 MG THREE TIMES A DAY
     Route: 042
     Dates: end: 20180201
  11. PREDNISOLONE. [Concomitant]
     Active Substance: PREDNISOLONE
     Indication: PRODUCT USED FOR UNKNOWN INDICATION
     Dosage: INCREASE PREDNISOLONE TO 10 MG FOR 5 DAYS;
     Route: 065
     Dates: start: 20180127
  12. ADOPORT [Suspect]
     Active Substance: TACROLIMUS
     Indication: RENAL TRANSPLANT
     Dosage: TACROLIMUS 1.5 MG TWICE A DAY
     Route: 065
     Dates: start: 20100127, end: 20180130
  13. CLARITHROMYCIN. [Suspect]
     Active Substance: CLARITHROMYCIN
     Indication: PNEUMONIA
     Dosage: 500 MILLIGRAM
     Route: 042
     Dates: start: 20180127, end: 20180131
  14. COLECALCIFEROL [Concomitant]
     Active Substance: CHOLECALCIFEROL
     Indication: PRODUCT USED FOR UNKNOWN INDICATION
     Dosage: CALCIUM CARBONATE + COLECALCIFEROL 20NG DAILY
     Route: 048
  15. SENNA [Concomitant]
     Active Substance: SENNA LEAF\SENNOSIDES\SENNOSIDES A AND B
     Indication: PRODUCT USED FOR UNKNOWN INDICATION
     Dosage: SENNA 15MG ON PO O/A
     Route: 048
  16. BISOPROLOL [Suspect]
     Active Substance: BISOPROLOL
     Indication: PRODUCT USED FOR UNKNOWN INDICATION
     Dosage: UNK
     Route: 065
  17. CHEMO IBERICA OMEPRAZOLE [Suspect]
     Active Substance: OMEPRAZOLE
     Indication: PRODUCT USED FOR UNKNOWN INDICATION
     Dosage: OMEPRAZOLE CHEMO IBERICA 20 MG DAILY
     Route: 048
  18. CHEMO IBERICA OMEPRAZOLE [Suspect]
     Active Substance: OMEPRAZOLE
     Dosage: 5 MILLIGRAM, QD(IN THE MORNING)
     Route: 048
  19. ALLOPURINOL. [Concomitant]
     Active Substance: ALLOPURINOL
     Indication: PRODUCT USED FOR UNKNOWN INDICATION
     Dosage: ALLOPURINOL 100MG OD PO O/A
     Route: 048
  20. ALFACALCIDOL [Concomitant]
     Active Substance: ALFACALCIDOL
     Indication: PRODUCT USED FOR UNKNOWN INDICATION
     Dosage: ALFACALCIDOL 500NG OD PO O/A
     Route: 048
  21. GTN [Concomitant]
     Active Substance: NITROGLYCERIN
     Indication: PRODUCT USED FOR UNKNOWN INDICATION
     Dosage: UNK
     Route: 065
  22. ENVARSUS XR [Suspect]
     Active Substance: TACROLIMUS
     Indication: RENAL TRANSPLANT
     Dosage: UNK
     Route: 065
  23. DOXYCYCLINE. [Concomitant]
     Active Substance: DOXYCYCLINE
     Indication: PRODUCT USED FOR UNKNOWN INDICATION
     Dosage: UNK
     Route: 065

REACTIONS (27)
  - Oesophageal perforation [Fatal]
  - Pleural effusion [Unknown]
  - Cardiac failure congestive [Fatal]
  - Rales [Unknown]
  - Myocardial ischaemia [Fatal]
  - Soft tissue mass [Unknown]
  - Toxicity to various agents [Not Recovered/Not Resolved]
  - Lower respiratory tract infection [Unknown]
  - Dysphagia [Unknown]
  - Transplant failure [Not Recovered/Not Resolved]
  - Pyrexia [Unknown]
  - Hypoglycaemia [Unknown]
  - Drug level increased [Fatal]
  - Inflammatory marker increased [Unknown]
  - Productive cough [Unknown]
  - Superinfection [Unknown]
  - Rash [Unknown]
  - Oesophageal carcinoma [Fatal]
  - Labelled drug-drug interaction medication error [Unknown]
  - Acute kidney injury [Fatal]
  - Immunosuppressant drug level increased [Fatal]
  - Haemoptysis [Unknown]
  - Lung consolidation [Unknown]
  - Ascites [Unknown]
  - Pneumonia [Unknown]
  - Cardiomegaly [Unknown]
  - Sepsis [Fatal]

NARRATIVE: CASE EVENT DATE: 20180118
